FAERS Safety Report 6336772-9 (Version None)
Quarter: 2009Q3

REPORT INFORMATION
  Report Type: 
  Country: None (occurrence: None)
  Receive Date: 20090901
  Receipt Date: 20090820
  Transmission Date: 20100115
  Serious: Yes (Hospitalization)
  Sender: FDA-Public Use
  Company Number: FR-PFIZER INC-2009257296

PATIENT
  Age: 49 Year

DRUGS (6)
  1. SUNITINIB MALATE [Suspect]
     Dosage: 50 MG, 1X/DAY
     Dates: end: 20090817
  2. PROPOFAN [Concomitant]
     Indication: ANALGESIC THERAPY
     Dosage: 2 DF, 2X/DAY
     Dates: start: 20060101
  3. LEVOTHYROXINE SODIUM [Concomitant]
     Indication: HYPOTHYROIDISM
     Dosage: 175 UNK, 1X/DAY
  4. SOLUPRED [Concomitant]
     Indication: HYPOTHYROIDISM
     Dosage: 20 MG, 1X/DAY
     Dates: start: 20080101
  5. PARIET [Concomitant]
     Indication: PROPHYLAXIS AGAINST GASTROINTESTINAL ULCER
     Dosage: 20 UNK, 1X/DAY
     Dates: start: 20080101
  6. RIVOTRIL [Concomitant]
     Indication: NEUROPATHY PERIPHERAL
     Dosage: UNK
     Dates: start: 20090401

REACTIONS (1)
  - PLEURAL EFFUSION [None]
